FAERS Safety Report 8166617-6 (Version None)
Quarter: 2012Q1

REPORT INFORMATION
  Report Type: 
  Country: None (occurrence: None)
  Receive Date: 20120227
  Receipt Date: 20120215
  Transmission Date: 20120608
  Serious: Yes (Death, Hospitalization, Other)
  Sender: FDA-Public Use
  Company Number: JP-AMGEN-JPNCT2011002127

PATIENT
  Age: 78 Year
  Sex: Male
  Weight: 70 kg

DRUGS (17)
  1. FLUOROURACIL [Suspect]
     Indication: COLORECTAL CANCER
     Route: 040
     Dates: start: 20101019, end: 20101124
  2. MINOCYCLINE HCL [Concomitant]
     Route: 048
  3. TERRA-CORTRIL [Concomitant]
     Route: 062
  4. OLMESARTAN MEDOXOMIL [Concomitant]
     Route: 048
     Dates: end: 20101218
  5. ISOSORBIDE MONONITRATE [Concomitant]
     Route: 048
     Dates: end: 20101218
  6. CARVEDILOL [Concomitant]
     Route: 048
     Dates: end: 20101218
  7. LIPITOR [Concomitant]
     Route: 048
     Dates: end: 20101218
  8. STEROID ANTIBACTERIALS [Concomitant]
  9. OXALIPLATIN [Suspect]
     Indication: COLORECTAL CANCER
     Route: 041
     Dates: start: 20101019, end: 20101124
  10. NIFELAT L [Concomitant]
     Route: 048
     Dates: end: 20101218
  11. LEVOLEUCOVORIN CALCIUM [Suspect]
     Indication: COLORECTAL CANCER
     Route: 041
     Dates: start: 20101019, end: 20101124
  12. HIRUDOID [Concomitant]
     Route: 062
  13. PANITUMUMAB [Suspect]
     Indication: COLORECTAL CANCER
     Dosage: 6 MG/KG, Q2WK
     Route: 041
     Dates: start: 20101019, end: 20101019
  14. PANITUMUMAB [Suspect]
     Dosage: 6 MG/KG, Q2WK
     Route: 041
     Dates: start: 20101110, end: 20101124
  15. FLUOROURACIL [Suspect]
     Route: 041
     Dates: start: 20101019, end: 20101124
  16. INDAPAMIDE [Concomitant]
     Route: 048
     Dates: end: 20101218
  17. ASPIRIN [Concomitant]
     Route: 048
     Dates: end: 20101218

REACTIONS (17)
  - DRUG INTERACTION [None]
  - OESOPHAGEAL ULCER HAEMORRHAGE [None]
  - INTERSTITIAL LUNG DISEASE [None]
  - DIARRHOEA [None]
  - AORTIC VALVE CALCIFICATION [None]
  - ATRIAL FIBRILLATION [None]
  - VENOUS THROMBOSIS [None]
  - DERMATITIS ACNEIFORM [None]
  - DRY SKIN [None]
  - BLOOD PH INCREASED [None]
  - ASCITES [None]
  - STAPHYLOCOCCAL INFECTION [None]
  - ACUTE RESPIRATORY DISTRESS SYNDROME [None]
  - STOMATITIS [None]
  - BRONCHIECTASIS [None]
  - PLEURAL EFFUSION [None]
  - THROMBOSIS IN DEVICE [None]
